FAERS Safety Report 4312840-8 (Version None)
Quarter: 2004Q1

REPORT INFORMATION
  Report Type: 
  Country: None (occurrence: None)
  Receive Date: 20040304
  Receipt Date: 20040220
  Transmission Date: 20041129
  Serious: Yes (Hospitalization)
  Sender: FDA-Public Use
  Company Number: 2004195369DK

PATIENT
  Age: 93 Year
  Sex: Female

DRUGS (5)
  1. CELEBREX [Suspect]
     Indication: ARTHRALGIA
     Dosage: 200 MG, QD, ORAL
     Route: 048
     Dates: end: 20040102
  2. SELO-ZOK (METOPROLOL SUCCINATE) [Concomitant]
  3. ACETAMINOPHEN [Concomitant]
  4. NITRAZEPAM [Concomitant]
  5. KININ [Concomitant]

REACTIONS (11)
  - ABDOMINAL PAIN UPPER [None]
  - ANAEMIA [None]
  - ASCITES [None]
  - DEHYDRATION [None]
  - FATIGUE [None]
  - GASTRIC ULCER [None]
  - JAUNDICE [None]
  - OVARIAN CANCER [None]
  - PNEUMONIA [None]
  - PYREXIA [None]
  - VOMITING [None]
